FAERS Safety Report 13718444 (Version 2)
Quarter: 2017Q3

REPORT INFORMATION
  Report Type: Report from Study
  Country: JP (occurrence: JP)
  Receive Date: 20170705
  Receipt Date: 20170825
  Transmission Date: 20171127
  Serious: Yes (Hospitalization)
  Sender: FDA-Public Use
  Company Number: JP-DSJP-DSJ-2017-117019

PATIENT

DRUGS (34)
  1. ZOLPIDEM                           /00914902/ [Concomitant]
     Active Substance: ZOLPIDEM\ZOLPIDEM TARTRATE
     Indication: INSOMNIA
     Dosage: 2.5 MG, QD
     Route: 048
     Dates: start: 20170411, end: 20170703
  2. BISONO [Concomitant]
     Active Substance: BISOPROLOL
     Dosage: 4 MG, QD
     Route: 062
     Dates: start: 20170717
  3. CELECOX [Concomitant]
     Active Substance: CELECOXIB
     Indication: CHONDROCALCINOSIS PYROPHOSPHATE
     Dosage: 100 MG, BID
     Route: 048
     Dates: start: 20170428, end: 20170511
  4. SODIUM CHLORIDE. [Concomitant]
     Active Substance: SODIUM CHLORIDE
     Indication: ELECTROLYTE SUBSTITUTION THERAPY
     Dosage: 5 G, BID
     Route: 048
     Dates: start: 20170804
  5. BISOPROLOL FUMARATE. [Concomitant]
     Active Substance: BISOPROLOL FUMARATE
     Indication: ATRIAL FIBRILLATION
     Dosage: 0.625 MG, QD
     Route: 048
     Dates: start: 20170512, end: 20170530
  6. TAKEPRON [Concomitant]
     Active Substance: LANSOPRAZOLE
     Indication: CHRONIC GASTRITIS
     Dosage: 30 MG, BID
     Route: 042
     Dates: start: 20170530, end: 20170608
  7. EDARAVONE [Concomitant]
     Active Substance: EDARAVONE
     Dosage: 30 MG, BID
     Route: 042
     Dates: start: 20170704, end: 20170707
  8. HEPARIN SODIUM. [Concomitant]
     Active Substance: HEPARIN SODIUM
     Indication: INFARCTION
     Dosage: 10000 IU, QD
     Route: 042
     Dates: start: 20170703, end: 20170710
  9. PARIET [Concomitant]
     Active Substance: RABEPRAZOLE SODIUM
     Indication: CHRONIC GASTRITIS
     Dosage: 10 MG, QD
     Route: 048
     Dates: start: 20170609, end: 20170703
  10. EDARAVONE [Concomitant]
     Active Substance: EDARAVONE
     Indication: CEREBRAL INFARCTION
     Dosage: 30 MG, QD
     Route: 042
     Dates: start: 20170703, end: 20170703
  11. GLORIAMIN                          /00518301/ [Concomitant]
     Indication: GASTRIC MUCOSAL LESION
     Dosage: 2G/DAY, TID
     Route: 048
     Dates: start: 20170704
  12. MIYA-BM [Concomitant]
     Active Substance: CLOSTRIDIUM BUTYRICUM SPORES STRAIN M-55
     Indication: PROPHYLAXIS AGAINST DIARRHOEA
     Dosage: 2 DF, BID
     Route: 048
     Dates: start: 20170704
  13. BLINDED DU-176B [Suspect]
     Active Substance: EDOXABAN TOSYLATE
     Indication: ATRIAL FIBRILLATION
     Dosage: UNK UNK, QD
     Route: 048
     Dates: start: 20170511, end: 20170530
  14. BISONO [Concomitant]
     Active Substance: BISOPROLOL
     Indication: ATRIAL FIBRILLATION
     Dosage: 4 MG, QD
     Route: 062
     Dates: start: 20170406, end: 20170511
  15. BISONO [Concomitant]
     Active Substance: BISOPROLOL
     Dosage: 4 MG, QD
     Route: 062
     Dates: start: 20170608, end: 20170703
  16. MOSAPRIDE CITRATE [Concomitant]
     Active Substance: MOSAPRIDE CITRATE
     Indication: ILEUS PARALYTIC
     Dosage: 5 MG, BID
     Route: 048
     Dates: start: 20170704
  17. VASOLAN                            /00014302/ [Concomitant]
     Active Substance: VERAPAMIL HYDROCHLORIDE
     Indication: TACHYCARDIA
     Dosage: 2.5 MG, AS NEEDED
     Route: 042
     Dates: start: 20170709, end: 20170709
  18. SENNOSIDE                          /00571901/ [Concomitant]
     Active Substance: SENNOSIDES A AND B
     Indication: CONSTIPATION
     Dosage: 24 MG, QD
     Route: 048
     Dates: start: 20170422, end: 20170422
  19. SENNOSIDE                          /00571901/ [Concomitant]
     Active Substance: SENNOSIDES A AND B
     Dosage: 24 MG, QD
     Route: 048
     Dates: start: 20170614, end: 20170614
  20. SENNOSIDE                          /00571901/ [Concomitant]
     Active Substance: SENNOSIDES A AND B
     Dosage: 24 MG, QD
     Route: 048
     Dates: start: 20170620, end: 20170620
  21. SENNOSIDE                          /00571901/ [Concomitant]
     Active Substance: SENNOSIDES A AND B
     Dosage: 24 MG, AS NEEDED
     Route: 048
     Dates: start: 20170707, end: 20170724
  22. DECADRON [Concomitant]
     Active Substance: DEXAMETHASONE
     Indication: CHONDROCALCINOSIS PYROPHOSPHATE
     Dosage: 1.65 MG, QD
     Route: 014
     Dates: start: 20170620, end: 20170620
  23. DAIKENCHUTO [Concomitant]
     Active Substance: HERBALS
     Indication: ILEUS PARALYTIC
     Dosage: 5 G, BID
     Route: 048
     Dates: start: 20170704
  24. LEVOFLOXACIN. [Concomitant]
     Active Substance: LEVOFLOXACIN
     Dosage: 250 MG, QD
     Route: 048
     Dates: start: 20170711, end: 20170718
  25. GLUCONSAN K [Concomitant]
     Active Substance: POTASSIUM GLUCONATE
     Dosage: 4MEQ/G, QD
     Route: 048
     Dates: start: 20170608, end: 20170703
  26. TAKECAB [Concomitant]
     Active Substance: VONOPRAZAN FUMURATE
     Indication: GASTRIC MUCOSAL LESION
     Dosage: 10 MG, QD
     Route: 048
     Dates: start: 20170704
  27. LEVOFLOXACIN. [Concomitant]
     Active Substance: LEVOFLOXACIN
     Indication: PNEUMONIA
     Dosage: 250 MG, BID
     Route: 048
     Dates: start: 20170710, end: 20170710
  28. BLINDED PLACEBO (DU-176B) [Suspect]
     Active Substance: EDOXABAN TOSYLATE
     Indication: ATRIAL FIBRILLATION
     Dosage: UNK UNK, QD
     Route: 048
     Dates: start: 20170511, end: 20170530
  29. GLUCONSAN K [Concomitant]
     Active Substance: POTASSIUM GLUCONATE
     Indication: HYPOKALAEMIA
     Dosage: 4MEQ/G, BID
     Route: 048
     Dates: start: 20170407, end: 20170703
  30. GLUCONSAN K [Concomitant]
     Active Substance: POTASSIUM GLUCONATE
     Dosage: 4MEQ/G, BID
     Route: 048
     Dates: start: 20170715, end: 20170722
  31. LOXONIN TAPE [Concomitant]
     Indication: CHONDROCALCINOSIS PYROPHOSPHATE
     Dosage: 100 MG, QD
     Route: 062
     Dates: start: 20170620, end: 20170703
  32. GASCON [Concomitant]
     Active Substance: DIMETHICONE
     Indication: ILEUS PARALYTIC
     Dosage: 40 MG, BID
     Route: 048
     Dates: start: 20170704
  33. AZOSEMIDE [Concomitant]
     Active Substance: AZOSEMIDE
     Indication: CARDIAC FAILURE CHRONIC
     Dosage: 30 MG, QD
     Route: 048
     Dates: start: 20170411, end: 20170609
  34. LIDOCAINE. [Concomitant]
     Active Substance: LIDOCAINE
     Indication: CHONDROCALCINOSIS PYROPHOSPHATE
     Dosage: 3 ML, QD
     Route: 014
     Dates: start: 20170620, end: 20170620

REACTIONS (1)
  - Diverticulum intestinal haemorrhagic [Recovering/Resolving]

NARRATIVE: CASE EVENT DATE: 20170530
